FAERS Safety Report 26050994 (Version 1)
Quarter: 2025Q4

REPORT INFORMATION
  Report Type: Spontaneous
  Country: EU (occurrence: EU)
  Receive Date: 20251117
  Receipt Date: 20251117
  Transmission Date: 20260117
  Serious: Yes (Other)
  Sender: ABBVIE
  Company Number: EU-EMB-M202406174-1

PATIENT
  Sex: Female

DRUGS (6)
  1. HUMIRA [Suspect]
     Active Substance: ADALIMUMAB
     Indication: Maternal exposure timing unspecified
     Dosage: PATIENT ROA: TRANSPLACENTAL
     Route: 065
  2. PROGESTERONE [Suspect]
     Active Substance: PROGESTERONE
     Indication: Maternal exposure timing unspecified
     Dosage: PATIENT ROA: TRANSPLACENTAL
     Route: 065
  3. PREDNISOLONE [Suspect]
     Active Substance: PREDNISOLONE
     Indication: Maternal exposure timing unspecified
     Dosage: PATIENT ROA: TRANSPLACENTAL
     Route: 065
  4. ACYCLOVIR [Suspect]
     Active Substance: ACYCLOVIR
     Indication: Maternal exposure timing unspecified
     Dosage: PATIENT ROA: TRANSPLACENTAL
     Route: 065
  5. AZATHIOPRINE [Suspect]
     Active Substance: AZATHIOPRINE
     Indication: Maternal exposure timing unspecified
     Dosage: PATIENT ROA: TRANSPLACENTAL
     Route: 065
  6. BUDESONIDE [Suspect]
     Active Substance: BUDESONIDE
     Indication: Maternal exposure timing unspecified
     Dosage: PATIENT ROA: TRANSPLACENTAL
     Route: 065

REACTIONS (2)
  - Cardiac septal hypertrophy [Recovered/Resolved]
  - Foetal exposure during pregnancy [Unknown]

NARRATIVE: CASE EVENT DATE: 20250201
